FAERS Safety Report 4837940-5 (Version None)
Quarter: 2005Q4

REPORT INFORMATION
  Report Type: 
  Country: None (occurrence: None)
  Receive Date: 20051123
  Receipt Date: 20051110
  Transmission Date: 20060501
  Serious: Yes (Life-Threatening, Other)
  Sender: FDA-Public Use
  Company Number: 2005152838

PATIENT
  Age: 60 Year
  Sex: Male

DRUGS (1)
  1. EPIRUBICIN [Suspect]
     Indication: ILL-DEFINED DISORDER
     Dosage: 40 MG,

REACTIONS (1)
  - INTERSTITIAL LUNG DISEASE [None]
